FAERS Safety Report 6063511-1 (Version None)
Quarter: 2009Q1

REPORT INFORMATION
  Report Type: 
  Country: None (occurrence: None)
  Receive Date: 20090203
  Receipt Date: 20090122
  Transmission Date: 20090719
  Serious: Yes (Other)
  Sender: FDA-Public Use
  Company Number: US-ELI_LILLY_AND_COMPANY-US200901004102

PATIENT
  Sex: Female

DRUGS (2)
  1. SYMBYAX [Suspect]
     Dosage: 1 D/F, UNK
  2. SYMBYAX [Suspect]
     Dosage: 1 D/F, UNK

REACTIONS (4)
  - DISORIENTATION [None]
  - DIZZINESS [None]
  - FALL [None]
  - FEMUR FRACTURE [None]
